FAERS Safety Report 11223231 (Version 5)
Quarter: 2015Q4

REPORT INFORMATION
  Report Type: Spontaneous
  Country: US (occurrence: US)
  Receive Date: 20150626
  Receipt Date: 20151123
  Transmission Date: 20160304
  Serious: Yes (Hospitalization, Other)
  Sender: FDA-Public Use
  Company Number: US-GLAXOSMITHKLINE-US2015090348

PATIENT
  Age: 52 Year
  Sex: Male

DRUGS (5)
  1. ROPINIROLE TABLET [Suspect]
     Active Substance: ROPINIROLE
     Indication: PARKINSON^S DISEASE
     Dosage: 4 MG, TID
     Route: 048
  2. LISINOPRIL. [Concomitant]
     Active Substance: LISINOPRIL
  3. PROZAC [Concomitant]
     Active Substance: FLUOXETINE HYDROCHLORIDE
  4. NEURONTIN [Concomitant]
     Active Substance: GABAPENTIN
  5. REQUIP [Suspect]
     Active Substance: ROPINIROLE HYDROCHLORIDE
     Indication: PRODUCT USED FOR UNKNOWN INDICATION

REACTIONS (11)
  - Road traffic accident [Unknown]
  - Sexual dysfunction [Unknown]
  - Abnormal behaviour [Not Recovered/Not Resolved]
  - Adverse drug reaction [Unknown]
  - Injury [Unknown]
  - Spinal fusion surgery [Unknown]
  - Imprisonment [Unknown]
  - Suicide attempt [Recovered/Resolved]
  - Somnolence [Not Recovered/Not Resolved]
  - Libido increased [Not Recovered/Not Resolved]
  - Gambling [Not Recovered/Not Resolved]

NARRATIVE: CASE EVENT DATE: 20150108
